FAERS Safety Report 18162177 (Version 2)
Quarter: 2020Q3

REPORT INFORMATION
  Report Type: Report from Study
  Country: IT (occurrence: IT)
  Receive Date: 20200818
  Receipt Date: 20200914
  Transmission Date: 20201103
  Serious: Yes (Other)
  Sender: FDA-Public Use
  Company Number: IT-TEVA-2020-IT-1814544

PATIENT
  Age: 87 Year
  Sex: Male

DRUGS (3)
  1. OLANZAPINE. [Suspect]
     Active Substance: OLANZAPINE
     Indication: PSYCHOTIC DISORDER
     Dosage: 5 MG
     Route: 048
  2. CARDIOASPIRIN 100 MG COMPRESSE GASTRORESISTENTI [Concomitant]
     Active Substance: ASPIRIN
     Indication: THROMBOSIS PROPHYLAXIS
     Dosage: 100 MG
     Route: 048
  3. PREGABALIN. [Suspect]
     Active Substance: PREGABALIN
     Indication: ANXIETY DISORDER
     Dosage: 25 MG
     Route: 048

REACTIONS (3)
  - Unresponsive to stimuli [Recovered/Resolved]
  - Sopor [Recovered/Resolved]
  - Loss of consciousness [Recovered/Resolved]

NARRATIVE: CASE EVENT DATE: 20200626
